FAERS Safety Report 6055297-1 (Version None)
Quarter: 2009Q1

REPORT INFORMATION
  Report Type: 
  Country: None (occurrence: None)
  Receive Date: 20090128
  Receipt Date: 20090116
  Transmission Date: 20090719
  Serious: Yes (Other)
  Sender: FDA-Public Use
  Company Number: US-PFIZER INC-2009157237

PATIENT
  Sex: Male
  Weight: 86.168 kg

DRUGS (1)
  1. LYRICA [Suspect]
     Indication: CONVULSION
     Dosage: 75 MG, 1X/DAY
     Dates: start: 20080101

REACTIONS (1)
  - LOSS OF CONSCIOUSNESS [None]
